FAERS Safety Report 9816170 (Version 1)
Quarter: 2014Q1

REPORT INFORMATION
  Report Type: Spontaneous
  Country: US (occurrence: US)
  Receive Date: 20140114
  Receipt Date: 20140114
  Transmission Date: 20141002
  Serious: Yes (Death)
  Sender: FDA-Public Use
  Company Number: US-PFIZER INC-2014007041

PATIENT
  Age: 25 Year
  Sex: Female

DRUGS (3)
  1. FENTANYL [Suspect]
     Dosage: UNK
  2. OXYCODONE HYDROCHLORIDE [Suspect]
     Dosage: UNK
  3. METHAMPHETAMINE [Suspect]
     Dosage: UNK

REACTIONS (1)
  - Completed suicide [Fatal]
